FAERS Safety Report 6158981-4 (Version None)
Quarter: 2009Q2

REPORT INFORMATION
  Report Type: 
  Country: None (occurrence: None)
  Receive Date: 20090415
  Receipt Date: 20090406
  Transmission Date: 20091009
  Serious: Yes (Life-Threatening, Other)
  Sender: FDA-Public Use
  Company Number: PI-03476

PATIENT
  Age: 55 Year
  Sex: Female

DRUGS (1)
  1. CHLORAPREP [Suspect]
     Indication: PREOPERATIVE CARE
     Dosage: 0.67 ML, ONCE, TOPICAL
     Route: 061
     Dates: start: 20090404

REACTIONS (6)
  - BRONCHOSPASM [None]
  - CHEST DISCOMFORT [None]
  - PALATAL DISORDER [None]
  - PHARYNGEAL OEDEMA [None]
  - SKIN BURNING SENSATION [None]
  - SWELLING [None]
